FAERS Safety Report 5625860-8 (Version None)
Quarter: 2008Q1

REPORT INFORMATION
  Report Type: 
  Country: None (occurrence: None)
  Receive Date: 20080211
  Receipt Date: 20071102
  Transmission Date: 20080703
  Serious: Yes (Hospitalization)
  Sender: FDA-Public Use
  Company Number: 2007S1011261

PATIENT
  Age: 85 Year
  Sex: Male

DRUGS (19)
  1. AMIODARONE HCL [Suspect]
     Indication: ATRIAL FIBRILLATION
  2. AMLODIPINE (AMLODIPINE) (PREV.) [Concomitant]
  3. ENALAPRIL (ENALAPRIL) (PREV.) [Concomitant]
  4. ISOSORBIDE-MONOITRATE (NO PREF. NAME) (PREV.) [Concomitant]
  5. THYROXINE (LEVOTHYROXINE SODIUM) (PREV.) [Concomitant]
  6. ASPIRIN (NO PREF. NAME) (PREV.) [Concomitant]
  7. CLOPIDOGREL (CLOPIDOGREL) (PREV.) [Concomitant]
  8. SIMVASTATIN (SIMVASTATIN) (PREV.) [Concomitant]
  9. ALFUZOSIN (ALFUZOSIN) (PREV.) [Concomitant]
  10. OMEPRAZOLE (OMEPRAZOLE) (PREV.) [Concomitant]
  11. AMLODIPINE (AMLODIPINE) (CON.) [Concomitant]
  12. ENALAPRIL (ENALAPRIL) (CON.) [Concomitant]
  13. ISOSORBIDE-MONONITRATE (NO PREF. NAME) (CON.) [Concomitant]
  14. THYROXINE (LEVOTHYROXINE SODIUM) (CON.) [Concomitant]
  15. ASPIRIN (NO PREF. NAME) (CON.) [Concomitant]
  16. CLOPIDOGREL (CLOPIDOGREL) (CON.) [Concomitant]
  17. SIMVASTATIN (SIMVASTATIN) (CON.) [Concomitant]
  18. ALFUZOSIN (ALFUZOSIN) (CON.) [Concomitant]
  19. OMEPRAZOLE (OMEPRAZOLE) (CON.) [Concomitant]

REACTIONS (3)
  - ABDOMINAL PAIN [None]
  - CHEST PAIN [None]
  - HYPONATRAEMIA [None]
